FAERS Safety Report 8922649 (Version 3)
Quarter: 2013Q1

REPORT INFORMATION
  Report Type: Spontaneous
  Country: US (occurrence: None)
  Receive Date: 20121115
  Receipt Date: 20121206
  Transmission Date: 20140127
  Serious: Yes (Other)
  Sender: FDA-Public Use
  Company Number: US-1195201

PATIENT
  Sex: Male

DRUGS (1)
  1. SYSTANE [Suspect]
     Dosage: (OPHTHALMIC)
     Route: 047

REACTIONS (5)
  - Feeling abnormal [None]
  - Blindness transient [None]
  - Aphasia [None]
  - Dizziness [None]
  - Balance disorder [None]
